FAERS Safety Report 11784790 (Version 1)
Quarter: 2015Q4

REPORT INFORMATION
  Report Type: Report from Study
  Country: US (occurrence: US)
  Receive Date: 20151130
  Receipt Date: 20151130
  Transmission Date: 20160305
  Serious: Yes (Hospitalization)
  Sender: FDA-Public Use
  Company Number: US-ROCHE-1666110

PATIENT
  Age: 80 Year
  Sex: Female

DRUGS (3)
  1. DOCETAXEL. [Suspect]
     Active Substance: DOCETAXEL
     Indication: NON-SMALL CELL LUNG CANCER
     Dosage: IV OVER 60 MIN ON DAY 1?THERAPY RECEIVED DATES: 19/JAN/2009 (CYCLE 14)
     Route: 042
     Dates: start: 20080421
  2. CISPLATIN. [Suspect]
     Active Substance: CISPLATIN
     Indication: NON-SMALL CELL LUNG CANCER
     Dosage: IV OVER 60 MIN ON DAY 1
     Route: 042
     Dates: start: 20080421
  3. BEVACIZUMAB [Suspect]
     Active Substance: BEVACIZUMAB
     Indication: NON-SMALL CELL LUNG CANCER
     Dosage: OVER 30-90 MIN ON DAY 1
     Route: 042
     Dates: start: 20080421

REACTIONS (1)
  - Vascular access complication [Unknown]

NARRATIVE: CASE EVENT DATE: 20090216
